FAERS Safety Report 26102258 (Version 1)
Quarter: 2025Q4

REPORT INFORMATION
  Report Type: Spontaneous
  Country: CN (occurrence: CN)
  Receive Date: 20251128
  Receipt Date: 20251128
  Transmission Date: 20260118
  Serious: Yes (Hospitalization)
  Sender: MERCK SHARP & DOHME LLC
  Company Number: CN-BAYER-2025A154949

PATIENT
  Sex: Male

DRUGS (2)
  1. VERQUVO [Suspect]
     Active Substance: VERICIGUAT
     Indication: Cardiac failure
     Dosage: 5 MG, QD
     Route: 048
     Dates: start: 20250724, end: 20251030
  2. EDOXABAN TOSYLATE [Suspect]
     Active Substance: EDOXABAN TOSYLATE
     Indication: Carotid arteriosclerosis
     Dosage: 30 MG, QD
     Route: 048
     Dates: start: 20250724, end: 20251030

REACTIONS (4)
  - Haematochezia [Unknown]
  - Increased dose administered [Unknown]
  - Pruritus [Unknown]
  - Product prescribing issue [Unknown]

NARRATIVE: CASE EVENT DATE: 20250101
